FAERS Safety Report 22653661 (Version 3)
Quarter: 2023Q4

REPORT INFORMATION
  Report Type: Report from Study
  Country: IT (occurrence: IT)
  Receive Date: 20230629
  Receipt Date: 20231010
  Transmission Date: 20240110
  Serious: Yes (Other)
  Sender: FDA-Public Use
  Company Number: IT-002147023-NVSC2023IT126041

PATIENT
  Age: 44 Year
  Sex: Male
  Weight: 68 kg

DRUGS (6)
  1. MAYZENT [Suspect]
     Active Substance: SIPONIMOD
     Indication: Multiple sclerosis
     Dosage: 1 MG, QD
     Route: 048
     Dates: start: 20230401, end: 20230418
  2. TIROSINT [Concomitant]
     Active Substance: LEVOTHYROXINE SODIUM
     Indication: Hypothyroidism
     Dosage: 75 UG (MONDAY TO THURSDAY)
     Route: 048
     Dates: start: 2018
  3. TIROSINT [Concomitant]
     Active Substance: LEVOTHYROXINE SODIUM
     Dosage: 50 UG (FRIDAY TO SUNDAY)
     Route: 048
  4. TIROSINT [Concomitant]
     Active Substance: LEVOTHYROXINE SODIUM
     Dosage: 1 DOSAGE FORM
     Route: 065
  5. CHOLECALCIFEROL [Concomitant]
     Active Substance: CHOLECALCIFEROL
     Indication: Vitamin D deficiency
     Dosage: 9 DRP (GGT) (1/12 MILLILITRE)
     Route: 048
     Dates: start: 20221214
  6. DIETARY SUPPLEMENT [Concomitant]
     Active Substance: DIETARY SUPPLEMENT
     Indication: Hypercholesterolaemia
     Dosage: 1 DOSAGE FORM
     Route: 048
     Dates: start: 202103

REACTIONS (4)
  - Cystoid macular oedema [Recovered/Resolved]
  - Vision blurred [Recovered/Resolved]
  - Macular oedema [Recovering/Resolving]
  - Macular oedema [Recovered/Resolved]

NARRATIVE: CASE EVENT DATE: 20230410
